FAERS Safety Report 23123777 (Version 1)
Quarter: 2023Q4

REPORT INFORMATION
  Report Type: Spontaneous
  Country: US (occurrence: US)
  Receive Date: 20231030
  Receipt Date: 20231030
  Transmission Date: 20240109
  Serious: No
  Sender: FDA-Public Use
  Company Number: US-BAYER-2023A152301

PATIENT
  Age: 16 Year
  Sex: Male

DRUGS (1)
  1. MIRALAX [Suspect]
     Active Substance: POLYETHYLENE GLYCOL 3350
     Indication: Cystic fibrosis
     Route: 048

REACTIONS (2)
  - Product use in unapproved indication [None]
  - Product administered to patient of inappropriate age [None]
